FAERS Safety Report 23036849 (Version 1)
Quarter: 2023Q4

REPORT INFORMATION
  Report Type: Spontaneous
  Country: US (occurrence: US)
  Receive Date: 20231006
  Receipt Date: 20231006
  Transmission Date: 20240110
  Serious: Yes (Death, Other)
  Sender: FDA-Public Use
  Company Number: US-INDIVIOR EUROPE LIMITED-INDV-139556-2023

PATIENT
  Age: 19 Year
  Sex: Male

DRUGS (3)
  1. SUBOXONE [Interacting]
     Active Substance: BUPRENORPHINE HYDROCHLORIDE\NALOXONE HYDROCHLORIDE
     Indication: Drug dependence
     Dosage: 8 MILLIGRAM (MULTIPLE DOSAGE)
     Route: 065
     Dates: start: 20210416, end: 202104
  2. OLANZAPINE [Interacting]
     Active Substance: OLANZAPINE
     Indication: Product used for unknown indication
     Dosage: 2.5 MILLIGRAM, UNK
     Route: 065
     Dates: start: 202011
  3. OLANZAPINE [Interacting]
     Active Substance: OLANZAPINE
     Dosage: 15 MILLIGRAM, QD
     Route: 065
     Dates: start: 202103, end: 202104

REACTIONS (8)
  - Overdose [Fatal]
  - Toxicity to various agents [Fatal]
  - Pneumonia [Unknown]
  - Respiratory depression [Unknown]
  - Cardiac discomfort [Unknown]
  - Product use issue [Recovered/Resolved]
  - Mouth haemorrhage [Unknown]
  - Foaming at mouth [Unknown]

NARRATIVE: CASE EVENT DATE: 20210401
